FAERS Safety Report 5194303-3 (Version None)
Quarter: 2006Q4

REPORT INFORMATION
  Report Type: 
  Country: None (occurrence: None)
  Receive Date: 20061228
  Receipt Date: 20061103
  Transmission Date: 20070319
  Serious: Yes (Other)
  Sender: FDA-Public Use
  Company Number: US-PFIZER INC-2006134861

PATIENT
  Sex: Male
  Weight: 63.5 kg

DRUGS (6)
  1. GEODON [Suspect]
     Indication: BIPOLAR DISORDER
  2. GEODON [Suspect]
     Indication: POST-TRAUMATIC STRESS DISORDER
  3. PROPRANOLOL [Concomitant]
  4. PROTONIX [Concomitant]
  5. ZESTRIL [Concomitant]
  6. COGENTIN [Concomitant]

REACTIONS (15)
  - ANXIETY [None]
  - BACK DISORDER [None]
  - CONVULSION [None]
  - DEPRESSION [None]
  - DILATATION ATRIAL [None]
  - DYSPNOEA [None]
  - FEELING JITTERY [None]
  - HYPERHIDROSIS [None]
  - HYPOCHONDRIASIS [None]
  - INCORRECT DOSE ADMINISTERED [None]
  - MANIA [None]
  - MUSCLE SPASMS [None]
  - PANIC REACTION [None]
  - PSYCHOTIC DISORDER [None]
  - PYREXIA [None]
